FAERS Safety Report 7506988-4 (Version None)
Quarter: 2011Q2

REPORT INFORMATION
  Report Type: 
  Country: None (occurrence: None)
  Receive Date: 20110526
  Receipt Date: 20110520
  Transmission Date: 20111010
  Serious: Yes (Hospitalization)
  Sender: FDA-Public Use
  Company Number: GXBR2011US01529

PATIENT
  Sex: Female
  Weight: 53.968 kg

DRUGS (8)
  1. LISINOPRIL [Concomitant]
     Indication: HYPERTENSION
     Dosage: 10 MG, BID
  2. CENTRUM SILVER [Concomitant]
     Dosage: 1 DF, UNK
  3. HYDROCHLOROTHIAZIDE [Concomitant]
     Indication: HYPERTENSION
     Dosage: 25 MG, QD
  4. LEVOTHYROXINE SODIUM [Concomitant]
     Indication: HYPOTHYROIDISM
     Dosage: 62.5 MG, UNK
  5. NITROFURANTOIN [Suspect]
     Indication: URINARY TRACT INFECTION
     Dosage: 200 MG, BID
     Route: 048
     Dates: start: 20110416, end: 20110421
  6. ASPIRIN [Concomitant]
     Dosage: 81 MG, UNK
  7. CITRACAL [Concomitant]
     Indication: OSTEOPOROSIS
     Dosage: 630 MG, UNK
  8. VITAMIN D [Concomitant]
     Indication: OSTEOPOROSIS
     Dosage: 500 IU, UNK

REACTIONS (6)
  - HAEMATOCHEZIA [None]
  - ASTHENIA [None]
  - DIARRHOEA [None]
  - DIZZINESS [None]
  - LOSS OF CONSCIOUSNESS [None]
  - BLINDNESS TRANSIENT [None]
